FAERS Safety Report 15784331 (Version 5)
Quarter: 2019Q2

REPORT INFORMATION
  Report Type: Spontaneous
  Country: JP (occurrence: JP)
  Receive Date: 20190103
  Receipt Date: 20190402
  Transmission Date: 20190711
  Serious: Yes (Hospitalization, Other)
  Sender: FDA-Public Use
  Company Number: JP-BRISTOL-MYERS SQUIBB COMPANY-BMS-2018-123122

PATIENT
  Age: 48 Year
  Sex: Male
  Weight: 52.1 kg

DRUGS (4)
  1. CISPLATIN. [Suspect]
     Active Substance: CISPLATIN
     Indication: HEAD AND NECK CANCER
     Dosage: 124.96 MG, UNK
     Route: 041
     Dates: start: 20171226, end: 20171226
  2. FLUOROURACIL. [Concomitant]
     Active Substance: FLUOROURACIL
     Indication: HEAD AND NECK CANCER
     Dosage: UNK
     Route: 065
     Dates: start: 20171226
  3. ERBITUX [Concomitant]
     Active Substance: CETUXIMAB
     Indication: HEAD AND NECK CANCER
     Dosage: UNK
     Route: 065
     Dates: start: 20171226
  4. OPDIVO [Suspect]
     Active Substance: NIVOLUMAB
     Indication: HEAD AND NECK CANCER
     Dosage: 157 MG(18/10/2017, 1/11, 15/11, 29/11)
     Route: 041
     Dates: start: 20171018, end: 20171129

REACTIONS (7)
  - Pneumonia [Recovered/Resolved]
  - Pruritus [Not Recovered/Not Resolved]
  - Eustachian tube dysfunction [Recovered/Resolved]
  - Pneumatosis intestinalis [Recovered/Resolved]
  - Erythema [Not Recovered/Not Resolved]
  - Otitis media [Recovered/Resolved]
  - Hyponatraemia [Recovered/Resolved]

NARRATIVE: CASE EVENT DATE: 20171115
